FAERS Safety Report 22387307 (Version 7)
Quarter: 2024Q3

REPORT INFORMATION
  Report Type: Report from Study
  Country: DE (occurrence: DE)
  Receive Date: 20230531
  Receipt Date: 20240809
  Transmission Date: 20241017
  Serious: Yes (Other)
  Sender: ROCHE
  Company Number: DE-ROCHE-3249315

PATIENT
  Age: 60 Year
  Sex: Female

DRUGS (4)
  1. OCREVUS [Suspect]
     Active Substance: OCRELIZUMAB
     Indication: Relapsing multiple sclerosis
     Route: 042
     Dates: start: 20220314, end: 20220328
  2. OCREVUS [Suspect]
     Active Substance: OCRELIZUMAB
     Route: 042
     Dates: start: 20220328
  3. TERIFLUNOMIDE [Concomitant]
     Active Substance: TERIFLUNOMIDE
     Dates: start: 20170614
  4. BACLOFEN [Concomitant]
     Active Substance: BACLOFEN
     Indication: Muscle spasticity

REACTIONS (2)
  - COVID-19 [Recovered/Resolved]
  - Human chorionic gonadotropin increased [Unknown]

NARRATIVE: CASE EVENT DATE: 20220701
